FAERS Safety Report 5492792-8 (Version None)
Quarter: 2007Q4

REPORT INFORMATION
  Report Type: 
  Country: None (occurrence: None)
  Receive Date: 20071023
  Receipt Date: 20071011
  Transmission Date: 20080405
  Serious: Yes (Hospitalization)
  Sender: FDA-Public Use
  Company Number: US-JNJFOC-20071003281

PATIENT
  Sex: Male

DRUGS (3)
  1. DURAGESIC-100 [Suspect]
     Route: 062
  2. DURAGESIC-100 [Suspect]
     Route: 062
  3. DURAGESIC-100 [Suspect]
     Indication: PAIN
     Route: 062

REACTIONS (6)
  - CARDIAC ARREST [None]
  - CARDIAC DISORDER [None]
  - CARDIOMYOPATHY [None]
  - DEVICE LEAKAGE [None]
  - HYPOTENSION [None]
  - LOSS OF CONSCIOUSNESS [None]
